FAERS Safety Report 6141746-7 (Version None)
Quarter: 2009Q2

REPORT INFORMATION
  Report Type: 
  Country: None (occurrence: None)
  Receive Date: 20090402
  Receipt Date: 20080714
  Transmission Date: 20091009
  Serious: No
  Sender: FDA-Public Use
  Company Number: US-ABBOTT-08P-163-0462500-00

PATIENT
  Age: 38 Year
  Sex: Female

DRUGS (1)
  1. LUPRON DEPOT [Suspect]
     Indication: ENDOMETRIOSIS
     Route: 058
     Dates: end: 20080301

REACTIONS (4)
  - AMENORRHOEA [None]
  - CHROMATURIA [None]
  - FEELING HOT [None]
  - VISUAL IMPAIRMENT [None]
